FAERS Safety Report 8146160-0 (Version None)
Quarter: 2012Q1

REPORT INFORMATION
  Report Type: 
  Country: None (occurrence: None)
  Receive Date: 20120217
  Receipt Date: 20110325
  Transmission Date: 20120608
  Serious: No
  Sender: FDA-Public Use
  Company Number: US-ABBOTT-11P-163-0714242-00

PATIENT
  Sex: Male
  Weight: 111.23 kg

DRUGS (1)
  1. SIMCOR [Suspect]
     Indication: BLOOD CHOLESTEROL INCREASED
     Dosage: 1000/40MG AT BEDTIME

REACTIONS (4)
  - PRURITUS [None]
  - BURNING SENSATION [None]
  - FLUSHING [None]
  - PARAESTHESIA [None]
